FAERS Safety Report 14340177 (Version 3)
Quarter: 2018Q1

REPORT INFORMATION
  Report Type: Report from Study
  Country: None (occurrence: CO)
  Receive Date: 20171231
  Receipt Date: 20180201
  Transmission Date: 20180509
  Serious: Yes (Hospitalization)
  Sender: FDA-Public Use
  Company Number: CO-ABBVIE-17K-036-2208007-00

PATIENT
  Age: 16 Year
  Sex: Female
  Weight: 33 kg

DRUGS (1)
  1. HUMIRA [Suspect]
     Active Substance: ADALIMUMAB
     Indication: CROHN^S DISEASE
     Route: 058
     Dates: start: 20170922, end: 20171103

REACTIONS (5)
  - Anal fistula [Recovering/Resolving]
  - Abdominal pain [Not Recovered/Not Resolved]
  - Tachycardia [Not Recovered/Not Resolved]
  - Decreased appetite [Not Recovered/Not Resolved]
  - Underweight [Not Recovered/Not Resolved]

NARRATIVE: CASE EVENT DATE: 2017
